FAERS Safety Report 14034053 (Version 1)
Quarter: 2017Q4

REPORT INFORMATION
  Report Type: Report from Study
  Country: BR (occurrence: BR)
  Receive Date: 20171003
  Receipt Date: 20171003
  Transmission Date: 20180321
  Serious: Yes (Other)
  Sender: FDA-Public Use
  Company Number: BR-ROCHE-1999642

PATIENT
  Age: 53 Year
  Sex: Female
  Weight: 103 kg

DRUGS (4)
  1. PANTOPRAZOLE [Concomitant]
     Active Substance: PANTOPRAZOLE
     Indication: PROPHYLAXIS OF NAUSEA AND VOMITING
     Dosage: FOR 7 YEARS FROM THE TIME OF THIS REPORT
     Route: 048
  2. MABTHERA [Suspect]
     Active Substance: RITUXIMAB
     Indication: RHEUMATOID ARTHRITIS
     Dosage: LATEST INFUSION: 25/SEP/2017
     Route: 042
  3. LOSARTAN. [Concomitant]
     Active Substance: LOSARTAN
     Dosage: FOR 7 YEARS FROM THE TIME OF THIS REPORT
     Route: 048
  4. ABLOK PLUS [Concomitant]
     Active Substance: ATENOLOL\CHLORTHALIDONE
     Dosage: FOR 7 YEARS FROM THE TIME OF THIS REPORT
     Route: 048

REACTIONS (2)
  - Dyspnoea [Recovered/Resolved]
  - Dysphagia [Recovered/Resolved]

NARRATIVE: CASE EVENT DATE: 20170925
